FAERS Safety Report 22374998 (Version 1)
Quarter: 2023Q2

REPORT INFORMATION
  Report Type: Spontaneous
  Country: US (occurrence: US)
  Receive Date: 20230527
  Receipt Date: 20230527
  Transmission Date: 20230722
  Serious: Yes (Hospitalization, Other)
  Sender: FDA-Public Use
  Company Number: US-UNITED THERAPEUTICS-UNT-2023-013809

PATIENT
  Age: 73 Year
  Sex: Male
  Weight: 65.669 kg

DRUGS (6)
  1. REMODULIN [Suspect]
     Active Substance: TREPROSTINIL
     Indication: Pulmonary arterial hypertension
     Dosage: 0.018 ?G/KG, CONTINUING (SELF-FILL CASSETTE WITH 2.5 ML AT A PUMP RATE OF 28 MCL/HOUR)
     Route: 058
  2. REMODULIN [Suspect]
     Active Substance: TREPROSTINIL
     Dosage: UNK, CONTINUING
     Route: 058
     Dates: start: 20230417
  3. REMODULIN [Suspect]
     Active Substance: TREPROSTINIL
     Indication: Pulmonary arterial hypertension
     Dosage: 0.023 ?G/KG, CONTINUING (SELF FILL WITH 2.5 ML PER CASSETTE; RATE 28 MCL PER HOUR)
     Route: 058
  4. REMODULIN [Suspect]
     Active Substance: TREPROSTINIL
     Dosage: UNK, CONTINUING (SELF FILL WITH 1.8 ML PER CASSETTE; RATE 18 MCL PER HOUR)
     Route: 058
  5. REMODULIN [Suspect]
     Active Substance: TREPROSTINIL
     Dosage: UNK, CONTINUING
     Route: 058
  6. ELIQUIS [Concomitant]
     Active Substance: APIXABAN
     Indication: Product used for unknown indication
     Dosage: UNK
     Route: 065

REACTIONS (9)
  - Pneumonia [Unknown]
  - Nasopharyngitis [Recovering/Resolving]
  - Cough [Recovering/Resolving]
  - Wheezing [Unknown]
  - Oedema peripheral [Unknown]
  - Device failure [Unknown]
  - Diarrhoea [Unknown]
  - Influenza [Recovering/Resolving]
  - Device failure [Unknown]

NARRATIVE: CASE EVENT DATE: 20230518
